FAERS Safety Report 6783494-6 (Version None)
Quarter: 2010Q2

REPORT INFORMATION
  Report Type: 
  Country: None (occurrence: None)
  Receive Date: 20100622
  Receipt Date: 20100608
  Transmission Date: 20101027
  Serious: Yes (Hospitalization)
  Sender: FDA-Public Use
  Company Number: PHHY2010US36034

PATIENT
  Sex: Female
  Weight: 111 kg

DRUGS (1)
  1. GLEEVEC [Suspect]
     Indication: CHRONIC MYELOID LEUKAEMIA
     Dosage: 300 MG DAILY
     Route: 048

REACTIONS (4)
  - CHEST PAIN [None]
  - CONTUSION [None]
  - EPISTAXIS [None]
  - PERIORBITAL HAEMATOMA [None]
